FAERS Safety Report 7722578-2 (Version None)
Quarter: 2011Q3

REPORT INFORMATION
  Report Type: 
  Country: None (occurrence: None)
  Receive Date: 20110831
  Receipt Date: 20110826
  Transmission Date: 20111222
  Serious: Yes (Hospitalization, Other)
  Sender: FDA-Public Use
  Company Number: US-PFIZER INC-2011199327

PATIENT
  Age: 69 Year
  Sex: Male

DRUGS (8)
  1. CYMBALTA [Suspect]
     Indication: NEURALGIA
     Dosage: 60 MG, UNK
  2. MELOXICAM [Concomitant]
  3. VERAPAMIL [Concomitant]
  4. METHADONE [Concomitant]
  5. ASPIRIN [Concomitant]
  6. NEXIUM [Concomitant]
  7. LYRICA [Suspect]
     Dosage: UNK
  8. TELMISARTAN [Concomitant]

REACTIONS (2)
  - PNEUMONIA ASPIRATION [None]
  - THROAT CANCER [None]
